FAERS Safety Report 18977749 (Version 8)
Quarter: 2021Q3

REPORT INFORMATION
  Report Type: Report from Study
  Country: US (occurrence: US)
  Receive Date: 20210306
  Receipt Date: 20210922
  Transmission Date: 20211014
  Serious: Yes (Other)
  Sender: FDA-Public Use
  Company Number: NVSC2021US052284

PATIENT
  Age: 72 Year
  Sex: Female

DRUGS (3)
  1. ENTRESTO [Suspect]
     Active Substance: SACUBITRIL\VALSARTAN
     Dosage: UNK(DOUBLED DOSE)
     Route: 065
  2. LASIX [Concomitant]
     Active Substance: FUROSEMIDE
     Indication: PRODUCT USED FOR UNKNOWN INDICATION
     Dosage: UNK
     Route: 065
  3. ENTRESTO [Suspect]
     Active Substance: SACUBITRIL\VALSARTAN
     Indication: PRODUCT USED FOR UNKNOWN INDICATION
     Dosage: UNK UNK, BID
     Route: 048
     Dates: start: 20210225

REACTIONS (11)
  - Peripheral swelling [Not Recovered/Not Resolved]
  - Arthropathy [Unknown]
  - Drug ineffective [Unknown]
  - Joint swelling [Recovering/Resolving]
  - Limb injury [Unknown]
  - Malaise [Unknown]
  - Blood pressure increased [Recovering/Resolving]
  - Atrial fibrillation [Unknown]
  - Fatigue [Unknown]
  - Temperature intolerance [Unknown]
  - Heart rate increased [Unknown]

NARRATIVE: CASE EVENT DATE: 20210912
